FAERS Safety Report 18652999 (Version 1)
Quarter: 2020Q4

REPORT INFORMATION
  Report Type: Spontaneous
  Country: SE (occurrence: SE)
  Receive Date: 20201223
  Receipt Date: 20201223
  Transmission Date: 20210114
  Serious: Yes (Other)
  Sender: FDA-Public Use
  Company Number: SE-ACCORD-211990

PATIENT
  Age: 43 Year
  Sex: Female
  Weight: 105 kg

DRUGS (11)
  1. ALUMINIUM HYDROXIDE/MAGNESIUM HYDROXIDE [Concomitant]
     Active Substance: ALUMINUM HYDROXIDE\MAGNESIUM HYDROXIDE
  2. CERAZETTE [Concomitant]
  3. ZOLPIDEM [Concomitant]
     Active Substance: ZOLPIDEM TARTRATE
  4. ATARAX [Concomitant]
     Active Substance: HYDROXYZINE HYDROCHLORIDE
  5. ALVEDON [Concomitant]
     Active Substance: ACETAMINOPHEN
  6. ORUDIS [Concomitant]
     Active Substance: KETOPROFEN
  7. BUSPIRONE [Suspect]
     Active Substance: BUSPIRONE HYDROCHLORIDE
     Indication: ANXIETY
     Dosage: 15 MG
     Dates: start: 20201022, end: 20201028
  8. THIAMINE. [Concomitant]
     Active Substance: THIAMINE
  9. FLUOXETINE [Concomitant]
     Active Substance: FLUOXETINE HYDROCHLORIDE
  10. STESOLID [Concomitant]
     Active Substance: DIAZEPAM
  11. PREGABALIN. [Concomitant]
     Active Substance: PREGABALIN

REACTIONS (5)
  - Tension headache [Unknown]
  - Initial insomnia [Unknown]
  - Cold-stimulus headache [Unknown]
  - Tremor [Unknown]
  - Arrhythmia [Unknown]

NARRATIVE: CASE EVENT DATE: 20201022
